FAERS Safety Report 16342541 (Version 2)
Quarter: 2020Q3

REPORT INFORMATION
  Report Type: Spontaneous
  Country: US (occurrence: US)
  Receive Date: 20190522
  Receipt Date: 20200821
  Transmission Date: 20201102
  Serious: Yes (Other)
  Sender: FDA-Public Use
  Company Number: US-GILEAD-2019-0407993

PATIENT
  Age: 59 Year
  Sex: Female
  Weight: 78.91 kg

DRUGS (54)
  1. HYDROCODONE BITARTRATE AND ACETAMINOPHEN [Concomitant]
     Active Substance: ACETAMINOPHEN\HYDROCODONE BITARTRATE
  2. METRONIDAZOLE. [Concomitant]
     Active Substance: METRONIDAZOLE
  3. HYDROCHLOROTHIAZIDE. [Concomitant]
     Active Substance: HYDROCHLOROTHIAZIDE
  4. DESONIDE. [Concomitant]
     Active Substance: DESONIDE
  5. OMEPRAZOLE. [Concomitant]
     Active Substance: OMEPRAZOLE
  6. KETOCONAZOLE. [Concomitant]
     Active Substance: KETOCONAZOLE
  7. LIDODERM [Concomitant]
     Active Substance: LIDOCAINE
  8. VENTOLIN HFA [Concomitant]
     Active Substance: ALBUTEROL SULFATE
  9. PROMETHAZINE [Concomitant]
     Active Substance: PROMETHAZINE HYDROCHLORIDE
  10. ADVAIR HFA [Concomitant]
     Active Substance: FLUTICASONE PROPIONATE\SALMETEROL XINAFOATE
  11. FOLIC ACID. [Concomitant]
     Active Substance: FOLIC ACID
  12. AMOXICILLIN. [Concomitant]
     Active Substance: AMOXICILLIN
  13. POLYETHYLENE GLYCOL 3350. [Concomitant]
     Active Substance: POLYETHYLENE GLYCOL 3350
  14. AMOXICILLIN/CLAV POT [Concomitant]
  15. COMBIVENT RESPIMAT [Concomitant]
     Active Substance: ALBUTEROL SULFATE\IPRATROPIUM BROMIDE
  16. DESCOVY [Concomitant]
     Active Substance: EMTRICITABINE\TENOFOVIR ALAFENAMIDE FUMARATE
  17. VITAMIN D3 [Concomitant]
     Active Substance: CHOLECALCIFEROL
  18. GABAPENTIN. [Concomitant]
     Active Substance: GABAPENTIN
  19. BUTRANS [Concomitant]
     Active Substance: BUPRENORPHINE
  20. PROAIR HFA [Concomitant]
     Active Substance: ALBUTEROL SULFATE
  21. NEOMYCIN / POLY B / DEXAMETHASONE [Concomitant]
     Active Substance: DEXAMETHASONE\NEOMYCIN SULFATE\POLYMYXIN B SULFATE
  22. QVAR [Concomitant]
     Active Substance: BECLOMETHASONE DIPROPIONATE
  23. SPIRIVA [Concomitant]
     Active Substance: TIOTROPIUM BROMIDE MONOHYDRATE
  24. TRUVADA [Suspect]
     Active Substance: EMTRICITABINE\TENOFOVIR DISOPROXIL FUMARATE
     Indication: HIV INFECTION
     Dosage: 200?300MG
     Route: 048
     Dates: start: 2004, end: 20161012
  25. PREVACID [Concomitant]
     Active Substance: LANSOPRAZOLE
  26. TRAMADOL. [Concomitant]
     Active Substance: TRAMADOL
  27. POTASSIUM [Concomitant]
     Active Substance: POTASSIUM
  28. PROVENTIL HFA [Concomitant]
     Active Substance: ALBUTEROL SULFATE
  29. TERCONAZOLE. [Concomitant]
     Active Substance: TERCONAZOLE
  30. FOSAMAX [Concomitant]
     Active Substance: ALENDRONATE SODIUM
  31. ISENTRESS [Concomitant]
     Active Substance: RALTEGRAVIR POTASSIUM
  32. TIVICAY [Concomitant]
     Active Substance: DOLUTEGRAVIR SODIUM
  33. METHYLPREDNISOLONE. [Concomitant]
     Active Substance: METHYLPREDNISOLONE
  34. ODEFSEY [Concomitant]
     Active Substance: EMTRICITABINE\RILPIVIRINE HYDROCHLORIDE\TENOFOVIR ALAFENAMIDE FUMARATE
  35. ISENTRESS [Concomitant]
     Active Substance: RALTEGRAVIR POTASSIUM
  36. IBUPROFEN. [Concomitant]
     Active Substance: IBUPROFEN
  37. NAPROXEN. [Concomitant]
     Active Substance: NAPROXEN
  38. LANSOPRAZOLE. [Concomitant]
     Active Substance: LANSOPRAZOLE
  39. EVISTA [Concomitant]
     Active Substance: RALOXIFENE HYDROCHLORIDE
  40. BUPROPION. [Concomitant]
     Active Substance: BUPROPION
  41. CALCIUM [Concomitant]
     Active Substance: CALCIUM
  42. CITALOPRAM [Concomitant]
     Active Substance: CITALOPRAM HYDROBROMIDE
  43. CYCLOBENZAPRINE. [Concomitant]
     Active Substance: CYCLOBENZAPRINE
  44. NEXIUM MUPS [ESOMEPRAZOLE MAGNESIUM] [Concomitant]
     Active Substance: ESOMEPRAZOLE MAGNESIUM
  45. SAVELLA [Concomitant]
     Active Substance: MILNACIPRAN HYDROCHLORIDE
  46. AZITHROMYCIN ANHYDROUS. [Concomitant]
     Active Substance: AZITHROMYCIN ANHYDROUS
  47. SUSTIVA [Concomitant]
     Active Substance: EFAVIRENZ
  48. LEVAQUIN [Concomitant]
     Active Substance: LEVOFLOXACIN
  49. SULFAMETHOXAZOLE [Concomitant]
     Active Substance: SULFAMETHOXAZOLE
  50. ACETAMINOPHEN;CODEINE [Concomitant]
     Active Substance: ACETAMINOPHEN\CODEINE PHOSPHATE
  51. MIRTAZAPINE. [Concomitant]
     Active Substance: MIRTAZAPINE
  52. KLOR?CON [Concomitant]
     Active Substance: POTASSIUM CHLORIDE
  53. AMLODIPINE [Concomitant]
     Active Substance: AMLODIPINE BESYLATE
  54. IPRATROPIUM/ALBUTEROL [Concomitant]
     Active Substance: ALBUTEROL\IPRATROPIUM

REACTIONS (12)
  - Quality of life decreased [Not Recovered/Not Resolved]
  - Anxiety [Not Recovered/Not Resolved]
  - Pain [Not Recovered/Not Resolved]
  - Osteoporosis [Not Recovered/Not Resolved]
  - Bone loss [Unknown]
  - General physical health deterioration [Not Recovered/Not Resolved]
  - Hip arthroplasty [Unknown]
  - Anhedonia [Not Recovered/Not Resolved]
  - Osteopenia [Not Recovered/Not Resolved]
  - Economic problem [Not Recovered/Not Resolved]
  - Depression [Not Recovered/Not Resolved]
  - Emotional distress [Not Recovered/Not Resolved]

NARRATIVE: CASE EVENT DATE: 2011
